FAERS Safety Report 25851351 (Version 3)
Quarter: 2025Q4

REPORT INFORMATION
  Report Type: Spontaneous
  Country: US (occurrence: US)
  Receive Date: 20250926
  Receipt Date: 20251113
  Transmission Date: 20260117
  Serious: Yes (Hospitalization, Other)
  Sender: SYNDAX
  Company Number: US-SYNDAX PHARMACEUTICALS, INC.-2025US000762

PATIENT
  Sex: Female
  Weight: 115.65 kg

DRUGS (1)
  1. REVUFORJ [Suspect]
     Active Substance: REVUMENIB CITRATE
     Indication: Product used for unknown indication
     Dosage: 270 MILLIGRAM, BID
     Route: 048

REACTIONS (4)
  - Transfusion [Unknown]
  - Platelet transfusion [Unknown]
  - Adverse event [Unknown]
  - Differentiation syndrome [Unknown]
